FAERS Safety Report 11554997 (Version 5)
Quarter: 2016Q1

REPORT INFORMATION
  Report Type: Report from Study
  Country: US (occurrence: US)
  Receive Date: 20150925
  Receipt Date: 20160205
  Transmission Date: 20160525
  Serious: Yes (Hospitalization, Other)
  Sender: FDA-Public Use
  Company Number: US-SA-2015SA139008

PATIENT
  Age: 54 Year
  Sex: Female
  Weight: 49.89 kg

DRUGS (2)
  1. LEMTRADA [Suspect]
     Active Substance: ALEMTUZUMAB
     Indication: MULTIPLE SCLEROSIS
     Route: 041
     Dates: start: 20150831, end: 20150904
  2. BACLOFEN. [Concomitant]
     Active Substance: BACLOFEN
     Indication: NEUROPATHY PERIPHERAL

REACTIONS (42)
  - Condition aggravated [Recovering/Resolving]
  - Hepatic enzyme increased [Not Recovered/Not Resolved]
  - Abdominal pain upper [Unknown]
  - Mental status changes [Unknown]
  - Alanine aminotransferase increased [Unknown]
  - Mucous stools [Unknown]
  - Dyspnoea [Unknown]
  - Contusion [Not Recovered/Not Resolved]
  - Musculoskeletal pain [Not Recovered/Not Resolved]
  - Haematochezia [Unknown]
  - Oropharyngeal pain [Unknown]
  - Dyspepsia [Unknown]
  - Pruritus [Unknown]
  - Feeling abnormal [Unknown]
  - Blood potassium increased [Unknown]
  - Visual impairment [Unknown]
  - Arthropathy [Not Recovered/Not Resolved]
  - White blood cell count abnormal [Not Recovered/Not Resolved]
  - Pain [Unknown]
  - Back pain [Unknown]
  - Wound infection [Unknown]
  - Ear pain [Unknown]
  - Nail disorder [Unknown]
  - Impaired healing [Not Recovered/Not Resolved]
  - Arthralgia [Not Recovered/Not Resolved]
  - Ileus paralytic [Unknown]
  - Urinary tract infection [Unknown]
  - Abdominal pain [Not Recovered/Not Resolved]
  - Skin papilloma [Unknown]
  - Abdominal distension [Recovering/Resolving]
  - Gastrointestinal motility disorder [Recovering/Resolving]
  - Dysphagia [Not Recovered/Not Resolved]
  - Constipation [Unknown]
  - Hepatic pain [Unknown]
  - Aspartate aminotransferase increased [Unknown]
  - Anxiety [Unknown]
  - Nausea [Unknown]
  - Scan abnormal [Unknown]
  - Panic disorder [Unknown]
  - Asthenia [Not Recovered/Not Resolved]
  - Ill-defined disorder [Unknown]
  - Rash [Unknown]

NARRATIVE: CASE EVENT DATE: 2015
